FAERS Safety Report 6262474-3 (Version None)
Quarter: 2009Q3

REPORT INFORMATION
  Report Type: 
  Country: None (occurrence: None)
  Receive Date: 20090709
  Receipt Date: 20090629
  Transmission Date: 20100115
  Serious: Yes (Hospitalization)
  Sender: FDA-Public Use
  Company Number: PT-GENENTECH-286116

PATIENT
  Sex: Female

DRUGS (1)
  1. MABTHERA [Suspect]
     Indication: NON-HODGKIN'S LYMPHOMA
     Dosage: 600 MG, Q3W
     Route: 042
     Dates: start: 20090624

REACTIONS (6)
  - HYPERHIDROSIS [None]
  - HYPOTENSION [None]
  - HYPOTHERMIA [None]
  - NAUSEA [None]
  - PALLOR [None]
  - VOMITING [None]
